FAERS Safety Report 24357405 (Version 2)
Quarter: 2024Q3

REPORT INFORMATION
  Report Type: Spontaneous
  Country: FI (occurrence: FI)
  Receive Date: 20240924
  Receipt Date: 20240930
  Transmission Date: 20241017
  Serious: Yes (Other)
  Sender: CHEPLAPHARM
  Company Number: FI-ELI_LILLY_AND_COMPANY-FI202002003253

PATIENT
  Age: 31 Year
  Sex: Male

DRUGS (3)
  1. OLANZAPINE PAMOATE [Suspect]
     Active Substance: OLANZAPINE PAMOATE
     Indication: Product used for unknown indication
     Dosage: 300 MG, EVERY TWO WEEKS
     Route: 030
     Dates: start: 20171012
  2. LATUDA [Concomitant]
     Active Substance: LURASIDONE HYDROCHLORIDE
     Indication: Product used for unknown indication
     Dosage: 37 MG, EACH EVENING?DAILY DOSE: 37 MILLIGRAM
     Route: 048
     Dates: start: 20181115, end: 20181212
  3. LATUDA [Concomitant]
     Active Substance: LURASIDONE HYDROCHLORIDE
     Indication: Product used for unknown indication
     Dosage: 74 MG, EACH EVENING?DAILY DOSE: 74 MILLIGRAM
     Route: 048
     Dates: start: 20181213

REACTIONS (10)
  - Hypoaesthesia oral [Recovered/Resolved]
  - Dizziness [Recovered/Resolved]
  - Dysarthria [Recovered/Resolved]
  - Loss of consciousness [Recovered/Resolved]
  - Gait disturbance [Recovered/Resolved]
  - Heart rate increased [Recovered/Resolved]
  - Post-injection delirium sedation syndrome [Recovered/Resolved]
  - Confusional state [Recovered/Resolved]
  - Disorientation [Recovered/Resolved]
  - Feeling drunk [Recovered/Resolved]

NARRATIVE: CASE EVENT DATE: 20200116
